FAERS Safety Report 17069913 (Version 1)
Quarter: 2019Q4

REPORT INFORMATION
  Report Type: Spontaneous
  Country: US (occurrence: US)
  Receive Date: 20191025
  Receipt Date: 20191025
  Transmission Date: 20200122
  Serious: No
  Sender: FDA-Public Use
  Company Number: None

PATIENT
  Sex: Female

DRUGS (1)
  1. HARVONI [Suspect]
     Active Substance: LEDIPASVIR\SOFOSBUVIR
     Indication: HEPATITIS C
     Dosage: ?          OTHER DOSE:90/400 MG;?
     Route: 048
     Dates: start: 20190904

REACTIONS (9)
  - Anxiety [None]
  - Bone pain [None]
  - Mood swings [None]
  - Feeling abnormal [None]
  - Malaise [None]
  - Liver disorder [None]
  - Myalgia [None]
  - Laboratory test abnormal [None]
  - Fatigue [None]
